FAERS Safety Report 7364989-3 (Version None)
Quarter: 2011Q1

REPORT INFORMATION
  Report Type: 
  Country: None (occurrence: None)
  Receive Date: 20110311
  Receipt Date: 20110224
  Transmission Date: 20110831
  Serious: Yes (Other)
  Sender: FDA-Public Use
  Company Number: AUR-APL-2011-00767

PATIENT

DRUGS (6)
  1. GLUCOSAMINE [Concomitant]
  2. METOPROLOL TARTRATE [Suspect]
  3. COUMADIN [Suspect]
  4. SIMETHICONE [Concomitant]
  5. ALBUTEROL [Suspect]
  6. FISH OIL [Concomitant]

REACTIONS (1)
  - ATRIAL FLUTTER [None]
